FAERS Safety Report 12703378 (Version 12)
Quarter: 2019Q3

REPORT INFORMATION
  Report Type: Report from Study
  Country: JP (occurrence: JP)
  Receive Date: 20160831
  Receipt Date: 20190726
  Transmission Date: 20191004
  Serious: Yes (Hospitalization, Other)
  Sender: FDA-Public Use
  Company Number: JP-JNJFOC-20160824209

PATIENT
  Age: 62 Year
  Sex: Male

DRUGS (15)
  1. ZITHROMAC [Concomitant]
     Active Substance: AZITHROMYCIN DIHYDRATE
     Indication: PROPHYLAXIS
     Route: 048
     Dates: start: 20140613, end: 20160617
  2. TIVICAY [Suspect]
     Active Substance: DOLUTEGRAVIR SODIUM
     Route: 048
     Dates: start: 20170401
  3. URSO [Concomitant]
     Active Substance: URSODIOL
     Indication: HEPATITIS C
     Route: 048
     Dates: start: 20140801, end: 20160629
  4. NAUZELIN [Concomitant]
     Active Substance: DOMPERIDONE
     Indication: NAUSEA
     Route: 048
     Dates: start: 20140617, end: 20160401
  5. FLUMETHOLON [Concomitant]
     Active Substance: FLUOROMETHOLONE
     Indication: CATARACT
     Route: 047
     Dates: start: 20180716, end: 201809
  6. TIVICAY [Suspect]
     Active Substance: DOLUTEGRAVIR SODIUM
     Indication: HIV INFECTION
     Route: 048
     Dates: start: 20140613, end: 20170331
  7. EVAMYL [Concomitant]
     Active Substance: LORMETAZEPAM
     Indication: INSOMNIA
     Route: 048
     Dates: start: 20140613
  8. BRONUCK [Concomitant]
     Active Substance: BROMFENAC SODIUM
     Indication: CATARACT
     Route: 047
     Dates: start: 20180716, end: 201809
  9. DARUNAVIR ETHANOLATE. [Suspect]
     Active Substance: DARUNAVIR ETHANOLATE
     Indication: HIV INFECTION
     Route: 048
     Dates: start: 20140613
  10. ISENTRESS [Suspect]
     Active Substance: RALTEGRAVIR POTASSIUM
     Indication: HIV INFECTION
     Route: 048
     Dates: start: 20101215, end: 20140612
  11. BENEFIX [Concomitant]
     Active Substance: COAGULATION FACTOR IX RECOMBINANT HUMAN\ISOPROPYL ALCOHOL
     Indication: FACTOR IX DEFICIENCY
     Route: 013
     Dates: start: 20140401
  12. INTELENCE [Suspect]
     Active Substance: ETRAVIRINE
     Indication: HIV INFECTION
     Dosage: ETRAVIRINE:100MG
     Route: 048
     Dates: start: 20140613
  13. LEVOFLOXACIN HEMIHYDRATE [Concomitant]
     Active Substance: LEVOFLOXACIN
     Indication: CATARACT
     Route: 047
  14. NORVIR [Suspect]
     Active Substance: RITONAVIR
     Indication: HIV INFECTION
     Route: 048
     Dates: start: 20140613
  15. SANBETASON [Concomitant]
     Active Substance: DEXAMETHASONE
     Indication: CATARACT
     Route: 047
     Dates: start: 20180716, end: 201808

REACTIONS (9)
  - Cataract [Recovering/Resolving]
  - Hepatitis C [Recovering/Resolving]
  - Hyponatraemia [Not Recovered/Not Resolved]
  - Constipation [Recovered/Resolved]
  - Intraocular lens implant [Not Recovered/Not Resolved]
  - Lymphocyte count decreased [Recovering/Resolving]
  - Protein total increased [Not Recovered/Not Resolved]
  - Nausea [Recovering/Resolving]
  - Cataract [Recovering/Resolving]

NARRATIVE: CASE EVENT DATE: 20140617
